FAERS Safety Report 7498541-6 (Version None)
Quarter: 2011Q2

REPORT INFORMATION
  Report Type: 
  Country: None (occurrence: None)
  Receive Date: 20110524
  Receipt Date: 20090205
  Transmission Date: 20111010
  Serious: Yes (Hospitalization, Other)
  Sender: FDA-Public Use
  Company Number: US-BAYER-200912323NA

PATIENT
  Age: 51 Year
  Sex: Male
  Weight: 71.655 kg

DRUGS (13)
  1. PROTAMINE SULFATE [Concomitant]
  2. LIPITOR [Concomitant]
     Dosage: 40 MG, UNK
     Route: 048
     Dates: start: 19990101
  3. VASOTEC [Concomitant]
     Route: 048
  4. ACETYLSALICYLIC ACID SRT [Concomitant]
     Route: 048
  5. HEPARIN [Concomitant]
     Dosage: 10
  6. TRASYLOL [Suspect]
     Indication: CORONARY ARTERY BYPASS
     Dosage: UNK
     Route: 042
     Dates: start: 19970403, end: 19970403
  7. TERAZOSIN HCL [Concomitant]
     Dosage: 20 MG, UNK
     Route: 048
     Dates: start: 19990101
  8. RED BLOOD CELLS [Concomitant]
     Dosage: 12 U, UNK
  9. FRESH FROZEN PLASMA [Concomitant]
     Dosage: 6 U, UNK
  10. PLATELETS [Concomitant]
     Dosage: 4 U, UNK
  11. LOPRESSOR [Concomitant]
     Dosage: 20 MG, UNK
     Route: 048
     Dates: start: 19970101
  12. AMICAR [Concomitant]
     Indication: CORONARY ARTERY BYPASS
     Dosage: UNK
     Dates: start: 19970403, end: 19970403
  13. NITROGLYCERIN [Concomitant]

REACTIONS (5)
  - UNEVALUABLE EVENT [None]
  - RENAL FAILURE [None]
  - PAIN [None]
  - RENAL FAILURE ACUTE [None]
  - INJURY [None]
